FAERS Safety Report 12207796 (Version 1)
Quarter: 2016Q1

REPORT INFORMATION
  Report Type: Spontaneous
  Country: US (occurrence: None)
  Receive Date: 20160323
  Receipt Date: 20160323
  Transmission Date: 20160526
  Serious: Yes (Other)
  Sender: FDA-Public Use
  Company Number: None

PATIENT
  Age: 49 Year
  Sex: Female

DRUGS (1)
  1. ENBREL [Suspect]
     Active Substance: ETANERCEPT
     Dosage: INJECTABLE
     Route: 058

REACTIONS (3)
  - Urticaria [None]
  - Enzyme activity decreased [None]
  - Therapy change [None]

NARRATIVE: CASE EVENT DATE: 20160322
